FAERS Safety Report 5695011-2 (Version None)
Quarter: 2008Q2

REPORT INFORMATION
  Report Type: 
  Country: None (occurrence: None)
  Receive Date: 20080404
  Receipt Date: 20080326
  Transmission Date: 20081010
  Serious: Yes (Hospitalization, Other)
  Sender: FDA-Public Use
  Company Number: GB-ABBOTT-08P-167-0443082-00

PATIENT
  Age: 56 Year
  Sex: Female

DRUGS (10)
  1. VALPROIC ACID [Suspect]
     Indication: EPILEPSY
     Route: 048
  2. INSULIN ASPART [Concomitant]
     Indication: DIABETES MELLITUS
     Route: 058
  3. INSULIN ASPART [Concomitant]
  4. METFORMIN HCL [Concomitant]
     Indication: TYPE 2 DIABETES MELLITUS
     Route: 048
  5. SIMVASTATIN [Concomitant]
     Indication: HYPERCHOLESTEROLAEMIA
     Route: 048
  6. DICLOFENAC SODIUM [Concomitant]
     Indication: ARTHRITIS
     Route: 048
  7. RIMONABANT [Concomitant]
     Indication: WEIGHT DECREASED
     Route: 048
     Dates: start: 20080215, end: 20080303
  8. RIMONABANT [Concomitant]
     Indication: OBESITY
     Route: 048
     Dates: start: 20080305
  9. FENOFIBRATE [Concomitant]
     Indication: HYPERCHOLESTEROLAEMIA
     Route: 048
  10. INSULIN GLARGINE [Concomitant]
     Indication: DIABETES MELLITUS
     Route: 058

REACTIONS (5)
  - ABNORMAL BEHAVIOUR [None]
  - DRUG INEFFECTIVE [None]
  - EPILEPSY [None]
  - FEELING ABNORMAL [None]
  - GLOSSODYNIA [None]
